FAERS Safety Report 9088123 (Version 1)
Quarter: 2013Q1

REPORT INFORMATION
  Report Type: Report from Study
  Country: US (occurrence: US)
  Receive Date: 20130130
  Receipt Date: 20130130
  Transmission Date: 20140127
  Serious: No
  Sender: FDA-Public Use
  Company Number: US-ABBOTT-12P-163-0985530-00

PATIENT
  Age: 54 Year
  Sex: Female

DRUGS (11)
  1. HUMIRA [Suspect]
     Indication: RHEUMATOID ARTHRITIS
     Dates: start: 20120918
  2. METHOTREXATE [Concomitant]
     Indication: RHEUMATOID ARTHRITIS
     Dosage: 4 TABS ON TUESDAY AND WEDNESDAY
  3. PREVACID [Concomitant]
     Indication: GASTROOESOPHAGEAL REFLUX DISEASE
  4. NORTRIPTYLINE [Concomitant]
     Indication: GASTRIC DISORDER
     Dosage: 1 TAB AT BEDTIME
  5. REGLAN [Concomitant]
     Indication: GASTRIC DISORDER
  6. AZELASTINE [Concomitant]
     Indication: PRODUCT USED FOR UNKNOWN INDICATION
     Dosage: 1 SPRAY PER NOSTRIL TWICE DAILY
     Route: 045
  7. NASONEX [Concomitant]
     Indication: PRODUCT USED FOR UNKNOWN INDICATION
     Dosage: 1 SPRAY PER NOSTRIL DAILY
     Route: 045
  8. PROAIR [Concomitant]
     Indication: ASTHMA
  9. MUCINEX [Concomitant]
     Indication: PRODUCT USED FOR UNKNOWN INDICATION
     Dosage: 400MG DAILY
  10. PROBIOTIC [Concomitant]
     Indication: PRODUCT USED FOR UNKNOWN INDICATION
  11. HYDROCODONE/APAP [Concomitant]
     Indication: PAIN
     Dosage: 10MG/325MG 1 TAB AS NEEDED

REACTIONS (1)
  - Back pain [Not Recovered/Not Resolved]
